FAERS Safety Report 23340677 (Version 1)
Quarter: 2023Q4

REPORT INFORMATION
  Report Type: Spontaneous
  Country: ES (occurrence: ES)
  Receive Date: 20231227
  Receipt Date: 20231227
  Transmission Date: 20240110
  Serious: Yes (Other)
  Sender: FDA-Public Use
  Company Number: ES-AEMPS-1463849

PATIENT
  Age: 25 Year
  Sex: Male

DRUGS (1)
  1. AMOXICILLIN [Suspect]
     Active Substance: AMOXICILLIN
     Indication: Tooth infection
     Dosage: 500 MILLIGRAM, 3 TIMES A DAY (Q8)
     Route: 048
     Dates: start: 20231206, end: 20231208

REACTIONS (3)
  - Lip oedema [Recovered/Resolved]
  - Orbital oedema [Recovered/Resolved]
  - Urticaria [Recovered/Resolved]

NARRATIVE: CASE EVENT DATE: 20231208
